FAERS Safety Report 8576712-5 (Version None)
Quarter: 2012Q3

REPORT INFORMATION
  Report Type: 
  Country: None (occurrence: None)
  Receive Date: 20120807
  Receipt Date: 20120803
  Transmission Date: 20120928
  Serious: Yes (Hospitalization)
  Sender: FDA-Public Use
  Company Number: BW-VIIV HEALTHCARE LIMITED-B0800193A

PATIENT
  Age: 27 Year
  Sex: Female

DRUGS (3)
  1. COMBIVIR [Suspect]
     Indication: HIV INFECTION
     Dosage: 450MG TWICE PER DAY
     Route: 048
     Dates: start: 20110120
  2. LOPINAVIR AND RITONAVIR [Suspect]
     Indication: HIV INFECTION
     Dosage: 500MG TWICE PER DAY
     Route: 048
     Dates: start: 20110120
  3. DEPO-PROVERA [Concomitant]
     Dates: end: 20120203

REACTIONS (1)
  - ABORTION MISSED [None]
